FAERS Safety Report 14008408 (Version 1)
Quarter: 2017Q3

REPORT INFORMATION
  Report Type: Spontaneous
  Country: IT (occurrence: IT)
  Receive Date: 20170925
  Receipt Date: 20170925
  Transmission Date: 20171128
  Serious: Yes (Other)
  Sender: FDA-Public Use
  Company Number: IT-MYLANLABS-2017M1058384

PATIENT
  Age: 10 Year
  Sex: Female

DRUGS (2)
  1. GABAPENTIN. [Suspect]
     Active Substance: GABAPENTIN
     Indication: PARTIAL SEIZURES
     Dosage: 1300 MG, QD
     Route: 048
  2. VIGABATRIN. [Interacting]
     Active Substance: VIGABATRIN
     Indication: PARTIAL SEIZURES
     Dosage: 1500 MG, QD
     Route: 048

REACTIONS (2)
  - Visual field defect [Recovered/Resolved]
  - Drug interaction [Recovered/Resolved]
